FAERS Safety Report 6973762-7 (Version None)
Quarter: 2010Q3

REPORT INFORMATION
  Report Type: 
  Country: None (occurrence: None)
  Receive Date: 20100909
  Receipt Date: 20100827
  Transmission Date: 20110219
  Serious: Yes (Hospitalization)
  Sender: FDA-Public Use
  Company Number: A0835087A

PATIENT
  Age: 59 Year
  Sex: Male
  Weight: 218.2 kg

DRUGS (1)
  1. AVANDIA [Suspect]
     Route: 048

REACTIONS (6)
  - ACUTE CORONARY SYNDROME [None]
  - ANAEMIA [None]
  - CARDIAC FAILURE CONGESTIVE [None]
  - DEEP VEIN THROMBOSIS [None]
  - MYOCARDIAL INFARCTION [None]
  - RENAL TUBULAR NECROSIS [None]
